FAERS Safety Report 6584065-7 (Version None)
Quarter: 2010Q1

REPORT INFORMATION
  Report Type: 
  Country: None (occurrence: None)
  Receive Date: 20100216
  Receipt Date: 20091210
  Transmission Date: 20100710
  Serious: No
  Sender: FDA-Public Use
  Company Number: US-ABBOTT-09P-163-0614884-00

PATIENT
  Sex: Male
  Weight: 106.69 kg

DRUGS (6)
  1. SIMCOR [Suspect]
     Indication: DRUG USE FOR UNKNOWN INDICATION
     Dosage: 1000/20MG
     Dates: start: 20090601
  2. LISINOPRIL [Concomitant]
     Indication: HYPERTENSION
  3. METFORMIN HCL [Concomitant]
     Indication: TYPE 2 DIABETES MELLITUS
  4. ALFALFA [Concomitant]
     Indication: ROUTINE HEALTH MAINTENANCE
  5. GARLIC [Concomitant]
     Indication: ROUTINE HEALTH MAINTENANCE
  6. ASPIRIN [Concomitant]
     Indication: ROUTINE HEALTH MAINTENANCE

REACTIONS (2)
  - ERECTILE DYSFUNCTION [None]
  - FLUSHING [None]
